FAERS Safety Report 11012522 (Version 1)
Quarter: 2015Q2

REPORT INFORMATION
  Report Type: Spontaneous
  Country: US (occurrence: None)
  Receive Date: 20150410
  Receipt Date: 20150410
  Transmission Date: 20150821
  Serious: No
  Sender: FDA-Public Use
  Company Number: None

PATIENT
  Age: 72 Year
  Sex: Female

DRUGS (1)
  1. BUDESONIDE. [Suspect]
     Active Substance: BUDESONIDE
     Indication: CROHN^S DISEASE
     Dosage: TAKEN BY MOUTH
     Route: 048

REACTIONS (6)
  - Nausea [None]
  - Product quality issue [None]
  - Vomiting [None]
  - Abdominal pain [None]
  - Product substitution issue [None]
  - Muscle spasms [None]

NARRATIVE: CASE EVENT DATE: 20150406
